FAERS Safety Report 8123740-X (Version None)
Quarter: 2012Q1

REPORT INFORMATION
  Report Type: 
  Country: None (occurrence: None)
  Receive Date: 20120208
  Receipt Date: 20120203
  Transmission Date: 20120608
  Serious: Yes (Disabling, Other)
  Sender: FDA-Public Use
  Company Number: US-MERCK-1201USA00337

PATIENT
  Age: 55 Year
  Sex: Female
  Weight: 90 kg

DRUGS (2)
  1. ALENDRONATE SODIUM [Suspect]
     Route: 065
  2. FOSAMAX [Suspect]
     Indication: OSTEOPOROSIS
     Route: 048
     Dates: start: 20010101, end: 20090101

REACTIONS (22)
  - FEMUR FRACTURE [None]
  - ASTHMA [None]
  - CYSTITIS [None]
  - SPINAL COLUMN STENOSIS [None]
  - DRUG INEFFECTIVE [None]
  - PATELLOFEMORAL PAIN SYNDROME [None]
  - SYNCOPE [None]
  - MUSCULOSKELETAL DISORDER [None]
  - PAIN IN EXTREMITY [None]
  - OSTEOARTHRITIS [None]
  - GASTROOESOPHAGEAL REFLUX DISEASE [None]
  - MENISCUS LESION [None]
  - STRESS URINARY INCONTINENCE [None]
  - MITRAL VALVE PROLAPSE [None]
  - FALL [None]
  - SINUS BRADYCARDIA [None]
  - GOUT [None]
  - STRESS FRACTURE [None]
  - CONSTIPATION [None]
  - LOW TURNOVER OSTEOPATHY [None]
  - FRACTURE NONUNION [None]
  - CYSTITIS INTERSTITIAL [None]
